FAERS Safety Report 19964763 (Version 1)
Quarter: 2021Q4

REPORT INFORMATION
  Report Type: Spontaneous
  Country: JP (occurrence: JP)
  Receive Date: 20211018
  Receipt Date: 20211018
  Transmission Date: 20220303
  Serious: Yes (Life-Threatening, Other)
  Sender: FDA-Public Use
  Company Number: JP-PFIZER INC-202101312207

PATIENT
  Age: 63 Year
  Sex: Male

DRUGS (6)
  1. GLIMEPIRIDE [Interacting]
     Active Substance: GLIMEPIRIDE
     Dosage: 0.5 MG
  2. VORICONAZOLE [Interacting]
     Active Substance: VORICONAZOLE
     Dosage: 400 MG
  3. TENELIGLIPTIN [Interacting]
     Active Substance: TENELIGLIPTIN
     Dosage: 20 MG
  4. METFORMIN [Concomitant]
     Active Substance: METFORMIN HYDROCHLORIDE
     Dosage: 500 MG
  5. CYCLOSPORINE [Concomitant]
     Active Substance: CYCLOSPORINE
     Dosage: 100 MG
  6. ACYCLOVIR [Concomitant]
     Active Substance: ACYCLOVIR
     Dosage: 200 MG

REACTIONS (2)
  - Drug interaction [Unknown]
  - Hypoglycaemia [Recovering/Resolving]
